FAERS Safety Report 5742392-7 (Version None)
Quarter: 2008Q2

REPORT INFORMATION
  Report Type: 
  Country: None (occurrence: None)
  Receive Date: 20080519
  Receipt Date: 20080505
  Transmission Date: 20081010
  Serious: Yes (Hospitalization, Other)
  Sender: FDA-Public Use
  Company Number: US-ELI_LILLY_AND_COMPANY-US200805000651

PATIENT
  Sex: Female

DRUGS (4)
  1. FORTEO [Suspect]
     Dates: start: 20070401
  2. LEVOXYL [Concomitant]
  3. ZOCOR [Concomitant]
  4. CALCIUM [Concomitant]

REACTIONS (2)
  - ARTHRALGIA [None]
  - HIP ARTHROPLASTY [None]
